FAERS Safety Report 15314832 (Version 1)
Quarter: 2018Q3

REPORT INFORMATION
  Report Type: Spontaneous
  Country: US (occurrence: US)
  Receive Date: 20180815
  Receipt Date: 20180815
  Transmission Date: 20181010
  Serious: Yes (Hospitalization)
  Sender: FDA-Public Use
  Company Number: None

PATIENT
  Sex: Female

DRUGS (11)
  1. TOPAMAX [Concomitant]
     Active Substance: TOPIRAMATE
  2. ENBREL [Suspect]
     Active Substance: ETANERCEPT
     Indication: ANKYLOSING SPONDYLITIS
     Route: 058
     Dates: start: 20180117
  3. CLARITIN [Concomitant]
     Active Substance: LORATADINE
  4. EXCEDRIN [Concomitant]
     Active Substance: ACETAMINOPHEN\ASPIRIN\CAFFEINE
  5. FLURBIPROFEN. [Concomitant]
     Active Substance: FLURBIPROFEN
  6. IMITREX [Concomitant]
     Active Substance: SUMATRIPTAN SUCCINATE
  7. LEUCOVOR [Concomitant]
  8. VITAMIN D [Concomitant]
     Active Substance: CHOLECALCIFEROL
  9. SULFASALZINE [Concomitant]
     Active Substance: SULFASALAZINE
  10. VITAMING B12 [Concomitant]
  11. PREDNISONE. [Concomitant]
     Active Substance: PREDNISONE

REACTIONS (1)
  - Uterine polyp [None]
